FAERS Safety Report 12092056 (Version 1)
Quarter: 2016Q1

REPORT INFORMATION
  Report Type: Spontaneous
  Country: IT (occurrence: IT)
  Receive Date: 20160219
  Receipt Date: 20160219
  Transmission Date: 20160526
  Serious: Yes (Hospitalization)
  Sender: FDA-Public Use
  Company Number: IT-BAYER-2016-029463

PATIENT
  Age: 77 Year
  Sex: Female

DRUGS (10)
  1. SEACOR [Concomitant]
     Active Substance: OMEGA-3 FATTY ACIDS
     Dosage: UNK
  2. ROCALTROL [Concomitant]
     Active Substance: CALCITRIOL
     Dosage: UNK
  3. CARDURA [Concomitant]
     Active Substance: DOXAZOSIN MESYLATE
     Dosage: UNK
  4. LASIX [Concomitant]
     Active Substance: FUROSEMIDE
     Dosage: UNK
  5. DILATREND [Concomitant]
     Active Substance: CARVEDILOL
     Dosage: UNK
  6. ZYLORIC [Concomitant]
     Active Substance: ALLOPURINOL
     Dosage: UNK
  7. CARDIOASPIRIN [Suspect]
     Active Substance: ASPIRIN
     Indication: THROMBOSIS PROPHYLAXIS
     Dosage: 100 MG, QD
     Route: 048
     Dates: start: 20150101, end: 20160104
  8. PEPTAZOL [Concomitant]
     Active Substance: PANTOPRAZOLE SODIUM
     Dosage: UNK
  9. FOLINA [Concomitant]
     Active Substance: FOLIC ACID
     Dosage: UNK
  10. INEGY [Concomitant]
     Active Substance: EZETIMIBE\SIMVASTATIN
     Dosage: UNK

REACTIONS (3)
  - Haematemesis [Unknown]
  - Syncope [Unknown]
  - Haemorrhagic anaemia [Unknown]

NARRATIVE: CASE EVENT DATE: 20160104
